FAERS Safety Report 9879413 (Version 3)
Quarter: 2014Q1

REPORT INFORMATION
  Report Type: Spontaneous
  Country: US (occurrence: US)
  Receive Date: 20140206
  Receipt Date: 20140313
  Transmission Date: 20141002
  Serious: Yes (Other)
  Sender: FDA-Public Use
  Company Number: US-BAYER-2014-010431

PATIENT
  Age: 72 Year
  Sex: Male
  Weight: 81.3 kg

DRUGS (11)
  1. XOFIGO [Suspect]
     Indication: PROSTATE CANCER METASTATIC
     Dosage: 115.39? CI, PERIPHERAL IV (IV PUSH) EVERY 4 WEEKS
     Route: 042
     Dates: start: 20131018, end: 20131018
  2. XOFIGO [Suspect]
     Indication: PROSTATE CANCER METASTATIC
     Dosage: 115.39? CI, PERIPHERAL IV (IV PUSH) EVERY 4 WEEKS
     Route: 042
     Dates: start: 20131115, end: 20131115
  3. XOFIGO [Suspect]
     Indication: PROSTATE CANCER METASTATIC
     Dosage: 115.39? CI, PERIPHERAL IV (IV PUSH) EVERY 4 WEEKS
     Route: 042
     Dates: start: 20131218, end: 20131218
  4. ALPRAZOLAM [Concomitant]
     Dosage: TAKE 10.5MG TABLET PO QHS
  5. AMLODIPINE [Concomitant]
     Dosage: TAKE 1 PO DAILY
  6. ATIVAN [Concomitant]
     Indication: NAUSEA
     Dosage: 1 TABLET (1MG) PO Q4H
  7. CLONAZEPAM [Concomitant]
     Dosage: 1MG PO TID
  8. ENALAPRIL [Concomitant]
     Dosage: 1 20MG-TABLET PO BID
  9. HYDROCODONE W/ACETAMINOPHEN [Concomitant]
     Indication: PAIN
     Dosage: 10MG-325MG TABLET: TAKE 1 PO Q4H PRN
  10. MORPHINE SULFATE [Concomitant]
     Dosage: 30MG TABLET, SUSTAINED ACTION TAKE 1 PO Q12H
  11. PREDNISONE [Concomitant]
     Dosage: 5MG TABLET: TAKE 1 PO AS DIRECTED

REACTIONS (5)
  - Photosensitivity reaction [None]
  - Skin discolouration [None]
  - Dry skin [None]
  - Skin exfoliation [None]
  - Skin exfoliation [None]
